FAERS Safety Report 10887069 (Version 1)
Quarter: 2015Q1

REPORT INFORMATION
  Report Type: Spontaneous
  Country: US (occurrence: US)
  Receive Date: 20150304
  Receipt Date: 20150304
  Transmission Date: 20150721
  Serious: No
  Sender: FDA-Public Use
  Company Number: US-PFIZER INC-2015078662

PATIENT
  Age: 64 Year
  Sex: Female
  Weight: 73 kg

DRUGS (10)
  1. LISINOPRIL AND HYDROCHLOROTHIAZIDE [Concomitant]
     Active Substance: HYDROCHLOROTHIAZIDE\LISINOPRIL
     Dosage: 20MG/ 12.5, DAILY
     Route: 048
  2. VITAMIN D [Concomitant]
     Active Substance: CHOLECALCIFEROL
     Dosage: 1000, UNK
     Route: 048
  3. NEXIUM [Concomitant]
     Active Substance: ESOMEPRAZOLE MAGNESIUM
     Dosage: 22 MG, UNK
     Route: 048
  4. PRISTIQ EXTENDED RELEASE [Concomitant]
     Active Substance: DESVENLAFAXINE SUCCINATE
     Dosage: 50 MG, DAILY
     Route: 048
  5. GABAPENTIN. [Suspect]
     Active Substance: GABAPENTIN
     Indication: RESTLESS LEGS SYNDROME
     Dosage: 800 MG, DAILY
     Route: 048
     Dates: start: 201501
  6. MOTRIN [Concomitant]
     Active Substance: IBUPROFEN
     Dosage: 200 MG, 2X/DAY
     Route: 048
  7. SOMA [Concomitant]
     Active Substance: CARISOPRODOL
     Dosage: 350 MG, DAILY
     Route: 048
  8. DONEPEZIL [Concomitant]
     Active Substance: DONEPEZIL
     Dosage: 10 MG, UNK
     Route: 048
  9. CALCIUM 600+D [Concomitant]
     Active Substance: CALCIUM\VITAMIN D
     Dosage: UNK, DAILY
     Route: 048
  10. GABAPENTIN. [Suspect]
     Active Substance: GABAPENTIN
     Dosage: 600 UNK, UNK

REACTIONS (9)
  - Aphasia [Not Recovered/Not Resolved]
  - Dyspraxia [Not Recovered/Not Resolved]
  - Dyskinesia [Not Recovered/Not Resolved]
  - Trance [Unknown]
  - Thinking abnormal [Unknown]
  - Fatigue [Not Recovered/Not Resolved]
  - Diplopia [Not Recovered/Not Resolved]
  - Somnolence [Unknown]
  - Motor dysfunction [Unknown]

NARRATIVE: CASE EVENT DATE: 201502
